FAERS Safety Report 6600291-2 (Version None)
Quarter: 2010Q1

REPORT INFORMATION
  Report Type: 
  Country: None (occurrence: None)
  Receive Date: 20100224
  Receipt Date: 20100217
  Transmission Date: 20100710
  Serious: Yes (Other)
  Sender: FDA-Public Use
  Company Number: GB-PFIZER INC-2010020444

PATIENT
  Age: 46 Year
  Sex: Female

DRUGS (3)
  1. CHAMPIX [Suspect]
     Indication: SMOKING CESSATION THERAPY
     Dosage: UNK
     Route: 048
     Dates: start: 20091110, end: 20100101
  2. CHAMPIX [Suspect]
     Dosage: UNK
     Route: 048
     Dates: start: 20091110, end: 20100101
  3. NEOCLARITYN [Concomitant]
     Indication: BEHCET'S SYNDROME
     Dosage: 5 MG, 1X/DAY
     Route: 048
     Dates: start: 20010101

REACTIONS (5)
  - DECREASED APPETITE [None]
  - LYMPHADENOPATHY [None]
  - MOUTH ULCERATION [None]
  - ORAL PAIN [None]
  - TONGUE COATED [None]
